FAERS Safety Report 14658774 (Version 2)
Quarter: 2018Q2

REPORT INFORMATION
  Report Type: Spontaneous
  Country: US (occurrence: US)
  Receive Date: 20180320
  Receipt Date: 20180518
  Transmission Date: 20180711
  Serious: Yes (Death, Life-Threatening, Hospitalization)
  Sender: FDA-Public Use
  Company Number: US-SUN PHARMACEUTICAL INDUSTRIES LTD-2018US-166947

PATIENT
  Age: 77 Year
  Sex: Male

DRUGS (1)
  1. DEXAMETHASONE. [Suspect]
     Active Substance: DEXAMETHASONE
     Indication: PRODUCT USED FOR UNKNOWN INDICATION

REACTIONS (6)
  - Colitis [Not Recovered/Not Resolved]
  - Respiratory failure [Unknown]
  - Strongyloidiasis [Fatal]
  - Sepsis [Unknown]
  - Shock [Unknown]
  - Hypoxia [Unknown]
